FAERS Safety Report 9332397 (Version 2)
Quarter: 2013Q2

REPORT INFORMATION
  Report Type: Spontaneous
  Country: GB (occurrence: GB)
  Receive Date: 20130606
  Receipt Date: 20130617
  Transmission Date: 20140414
  Serious: Yes (Death)
  Sender: FDA-Public Use
  Company Number: PHFR2013GB003250

PATIENT
  Age: 41 Year
  Sex: Male
  Weight: 89 kg

DRUGS (5)
  1. CLOZARIL [Suspect]
     Indication: SCHIZOPHRENIA
     Dosage: 500 MG, (SINCE 10 YEARS)
     Route: 048
     Dates: start: 20011116
  2. AMISULPRIDE [Concomitant]
     Indication: SCHIZOPHRENIA
     Dosage: 400 MG, UNK
     Route: 048
  3. LAMOTRIGIN [Concomitant]
     Indication: SCHIZOPHRENIA
     Dosage: 150 MG, UNK
  4. RAMIPRIL [Concomitant]
     Indication: HYPERTENSION
     Dosage: 10 MG, UNK
     Route: 048
  5. HYOSCINE [Concomitant]
     Indication: HYPERTENSION
     Dosage: 150 MG, UNK
     Route: 048

REACTIONS (3)
  - Heart disease congenital [Fatal]
  - Cardiomyopathy [Fatal]
  - Arrhythmia [Fatal]
